FAERS Safety Report 13061269 (Version 1)
Quarter: 2016Q4

REPORT INFORMATION
  Report Type: Spontaneous
  Country: GB (occurrence: GB)
  Receive Date: 20161226
  Receipt Date: 20161226
  Transmission Date: 20170207
  Serious: Yes (Other)
  Sender: FDA-Public Use
  Company Number: GB-ACCORD-046740

PATIENT
  Age: 68 Year
  Sex: Female
  Weight: 89.4 kg

DRUGS (11)
  1. VERAPAMIL [Concomitant]
     Active Substance: VERAPAMIL HYDROCHLORIDE
  2. ESCITALOPRAM [Concomitant]
     Active Substance: ESCITALOPRAM OXALATE
  3. FUROSEMIDE. [Concomitant]
     Active Substance: FUROSEMIDE
  4. CANDESARTAN [Concomitant]
     Active Substance: CANDESARTAN
  5. LETROZOLE. [Suspect]
     Active Substance: LETROZOLE
     Indication: NEOPLASM MALIGNANT
     Route: 048
     Dates: start: 20121023, end: 20161120
  6. ATORVASTATIN [Concomitant]
     Active Substance: ATORVASTATIN
  7. HUMULIN NOS [Concomitant]
     Active Substance: INSULIN HUMAN
  8. ADCAL-D3 [Concomitant]
     Active Substance: CALCIUM CARBONATE\CHOLECALCIFEROL
  9. LANSOPRAZOLE. [Concomitant]
     Active Substance: LANSOPRAZOLE
  10. LEVOTHYROXINE. [Concomitant]
     Active Substance: LEVOTHYROXINE
  11. METFORMIN [Concomitant]
     Active Substance: METFORMIN HYDROCHLORIDE

REACTIONS (1)
  - Lichen sclerosus [Recovering/Resolving]

NARRATIVE: CASE EVENT DATE: 20161001
